APPROVED DRUG PRODUCT: DESMOPRESSIN ACETATE
Active Ingredient: DESMOPRESSIN ACETATE
Strength: 0.004MG/ML
Dosage Form/Route: INJECTABLE;INJECTION
Application: A091374 | Product #001
Applicant: AMERICAN REGENT INC
Approved: Feb 14, 2019 | RLD: No | RS: No | Type: DISCN